FAERS Safety Report 4299026-0 (Version None)
Quarter: 2004Q1

REPORT INFORMATION
  Report Type: 
  Country: None (occurrence: None)
  Receive Date: 20040217
  Receipt Date: 20040130
  Transmission Date: 20041129
  Serious: Yes (Life-Threatening)
  Sender: FDA-Public Use
  Company Number: 2004AP00533

PATIENT
  Age: 49 Year
  Sex: Male

DRUGS (1)
  1. XYLOCAINE [Suspect]
     Dosage: 10 % IVD
     Route: 041
     Dates: start: 20040126, end: 20040126

REACTIONS (5)
  - DYSPNOEA [None]
  - EUTHANASIA [None]
  - FALL [None]
  - LOSS OF CONSCIOUSNESS [None]
  - PULSE ABNORMAL [None]
